FAERS Safety Report 25412697 (Version 1)
Quarter: 2025Q2

REPORT INFORMATION
  Report Type: Spontaneous
  Country: JP (occurrence: JP)
  Receive Date: 20250609
  Receipt Date: 20250609
  Transmission Date: 20250717
  Serious: Yes (Other)
  Sender: PFIZER
  Company Number: JP-PFIZER INC-PV202500066342

PATIENT
  Age: 56 Year
  Sex: Female
  Weight: 49 kg

DRUGS (11)
  1. IRINOTECAN HYDROCHLORIDE [Suspect]
     Active Substance: IRINOTECAN HYDROCHLORIDE
     Indication: Colon cancer
  2. LEVOLEUCOVORIN CALCIUM [Suspect]
     Active Substance: LEVOLEUCOVORIN CALCIUM
     Indication: Colon cancer
  3. OXALIPLATIN [Suspect]
     Active Substance: OXALIPLATIN
     Indication: Colon cancer
  4. BEVACIZUMAB [Suspect]
     Active Substance: BEVACIZUMAB
     Indication: Colon cancer
  5. FLUOROURACIL [Suspect]
     Active Substance: FLUOROURACIL
     Indication: Colon cancer
  6. APREPITANT [Concomitant]
     Active Substance: APREPITANT
  7. APREPITANT [Concomitant]
     Active Substance: APREPITANT
  8. DEXAMETHASONE [Concomitant]
     Active Substance: DEXAMETHASONE
  9. DEXAMETHASONE [Concomitant]
     Active Substance: DEXAMETHASONE
  10. PALONOSETRON [Concomitant]
     Active Substance: PALONOSETRON
  11. ACETAMINOPHEN [Concomitant]
     Active Substance: ACETAMINOPHEN

REACTIONS (5)
  - Neuropathy peripheral [Recovering/Resolving]
  - Neutrophil count decreased [Recovering/Resolving]
  - Decreased appetite [Unknown]
  - Nausea [Unknown]
  - Hypertension [Unknown]
